FAERS Safety Report 8450285-X (Version None)
Quarter: 2012Q2

REPORT INFORMATION
  Report Type: 
  Country: None (occurrence: None)
  Receive Date: 20120620
  Receipt Date: 20120611
  Transmission Date: 20120825
  Serious: Yes (Hospitalization)
  Sender: FDA-Public Use
  Company Number: FR-ASTRAZENECA-2012SE27168

PATIENT
  Sex: Female

DRUGS (4)
  1. CANDESARTAN CILEXETIL AND HYDROCHLOROTHIAZIDE [Suspect]
     Indication: PRODUCT USED FOR UNKNOWN INDICATION
     Dosage: 29 TABLETS OF 16/12.5 MG
     Route: 048
     Dates: start: 20120312, end: 20120312
  2. MINOCYCLINE HYDROCHLORIDE [Suspect]
     Indication: PRODUCT USED FOR UNKNOWN INDICATION
     Dosage: 15 TABLETS OF 100 MG
     Route: 048
     Dates: start: 20120312, end: 20120312
  3. OXEOL [Suspect]
     Indication: PRODUCT USED FOR UNKNOWN INDICATION
     Dosage: 15 TABLETS OF 20 MG
     Route: 048
     Dates: start: 20120312, end: 20120312
  4. AUGMENTIN '125' [Suspect]
     Indication: PRODUCT USED FOR UNKNOWN INDICATION
     Dosage: 4 TABLETS OF 500 MG
     Route: 048
     Dates: start: 20120312, end: 20120312

REACTIONS (2)
  - TACHYCARDIA [None]
  - HYPOTENSION [None]
